FAERS Safety Report 16406841 (Version 1)
Quarter: 2019Q2

REPORT INFORMATION
  Report Type: Report from Study
  Country: None (occurrence: US)
  Receive Date: 20190607
  Receipt Date: 20190607
  Transmission Date: 20190711
  Serious: Yes (Hospitalization, Other)
  Sender: FDA-Public Use
  Company Number: US-ABBVIE-19K-163-2707177-00

PATIENT
  Age: 75 Year
  Sex: Female
  Weight: 93.52 kg

DRUGS (2)
  1. HUMIRA [Suspect]
     Active Substance: ADALIMUMAB
     Route: 058
     Dates: start: 201904
  2. HUMIRA [Suspect]
     Active Substance: ADALIMUMAB
     Indication: PSORIASIS
     Route: 058
     Dates: start: 2018, end: 201902

REACTIONS (2)
  - Coronary artery occlusion [Recovered/Resolved]
  - Post procedural stroke [Recovered/Resolved]

NARRATIVE: CASE EVENT DATE: 201901
